FAERS Safety Report 20206559 (Version 1)
Quarter: 2021Q4

REPORT INFORMATION
  Report Type: Spontaneous
  Country: US (occurrence: None)
  Receive Date: 20211218
  Receipt Date: 20211218
  Transmission Date: 20220303
  Serious: No
  Sender: FDA-Public Use
  Company Number: None

PATIENT
  Age: 29 Year
  Sex: Female
  Weight: 56.25 kg

DRUGS (1)
  1. OSELTAMIVIR PHOSPHATE [Suspect]
     Active Substance: OSELTAMIVIR PHOSPHATE
     Indication: Influenza
     Dosage: OTHER QUANTITY : 10 CAPSULE(S);?FREQUENCY : TWICE A DAY;?
     Route: 048
     Dates: start: 20211217, end: 20211218

REACTIONS (5)
  - Urticaria [None]
  - Rash pruritic [None]
  - Rash erythematous [None]
  - Feeling hot [None]
  - Peripheral swelling [None]

NARRATIVE: CASE EVENT DATE: 20211218
